FAERS Safety Report 8984367 (Version 1)
Quarter: 2012Q4

REPORT INFORMATION
  Report Type: Report from Study
  Country: CA (occurrence: CA)
  Receive Date: 20121226
  Receipt Date: 20121226
  Transmission Date: 20130627
  Serious: Yes (Other)
  Sender: FDA-Public Use
  Company Number: CA-JNJFOC-20121208115

PATIENT
  Age: 54 Year
  Sex: Male
  Weight: 99 kg

DRUGS (2)
  1. REMICADE [Suspect]
     Indication: CROHN^S DISEASE
     Dosage: around 495 mg
     Route: 042
     Dates: start: 2010
  2. REMICADE [Suspect]
     Indication: CROHN^S DISEASE
     Dosage: 23rd infusion
     Route: 042
     Dates: start: 20121213

REACTIONS (4)
  - Surgery [Recovering/Resolving]
  - Infusion related reaction [Recovering/Resolving]
  - Hot flush [Recovering/Resolving]
  - Blood pressure increased [Recovering/Resolving]
